FAERS Safety Report 25716655 (Version 2)
Quarter: 2025Q3

REPORT INFORMATION
  Report Type: Spontaneous
  Country: US (occurrence: US)
  Receive Date: 20250822
  Receipt Date: 20250822
  Transmission Date: 20251021
  Serious: No
  Sender: JOHNSON AND JOHNSON
  Company Number: US-JNJFOC-20250821072

PATIENT
  Age: 9 Year
  Sex: Male

DRUGS (3)
  1. RISPERDAL [Suspect]
     Active Substance: RISPERIDONE
     Indication: Tourette^s disorder
     Route: 048
  2. TOPAMAX [Suspect]
     Active Substance: TOPIRAMATE
     Indication: Tourette^s disorder
     Route: 048
  3. TOPAMAX [Suspect]
     Active Substance: TOPIRAMATE
     Route: 048

REACTIONS (6)
  - Drug ineffective [Unknown]
  - Fatigue [Unknown]
  - Memory impairment [Unknown]
  - Language disorder [Unknown]
  - Aphasia [Unknown]
  - Off label use [Unknown]

NARRATIVE: CASE EVENT DATE: 20120725
